FAERS Safety Report 4822623-8 (Version None)
Quarter: 2005Q4

REPORT INFORMATION
  Report Type: 
  Country: None (occurrence: None)
  Receive Date: 20051108
  Receipt Date: 20051005
  Transmission Date: 20060501
  Serious: Yes (Death, Other)
  Sender: FDA-Public Use
  Company Number: PHBS2005ZA16116

PATIENT
  Age: 33 Year

DRUGS (1)
  1. RITALIN [Suspect]
     Indication: NARCOLEPSY
     Dosage: UNK, UNK
     Route: 065
     Dates: start: 20050101

REACTIONS (3)
  - CARDIOMEGALY [None]
  - HYPERTENSION [None]
  - MYOCARDIAL INFARCTION [None]
